FAERS Safety Report 19933810 (Version 1)
Quarter: 2021Q4

REPORT INFORMATION
  Report Type: Spontaneous
  Country: US (occurrence: US)
  Receive Date: 20211008
  Receipt Date: 20211008
  Transmission Date: 20220303
  Serious: Yes (Other)
  Sender: FDA-Public Use
  Company Number: US-FRESENIUS KABI-FK202110773

PATIENT
  Sex: Male

DRUGS (6)
  1. FLUOROURACIL [Suspect]
     Active Substance: FLUOROURACIL
     Indication: Oesophageal adenocarcinoma
     Dosage: PALLIATIVE FOLFOX WITHOUT HERCEPTIN; 8 CYCLES
     Route: 065
     Dates: start: 202102
  2. FLUOROURACIL [Suspect]
     Active Substance: FLUOROURACIL
     Indication: Metastasis
  3. OXALIPLATIN [Concomitant]
     Active Substance: OXALIPLATIN
     Indication: Oesophageal adenocarcinoma
     Dosage: PALLIATIVE FOLFOX WITHOUT HERCEPTIN, 8 CYCLES
     Route: 065
     Dates: start: 202102
  4. OXALIPLATIN [Concomitant]
     Active Substance: OXALIPLATIN
     Indication: Metastasis
  5. LEUCOVORIN [Concomitant]
     Active Substance: LEUCOVORIN
     Indication: Oesophageal adenocarcinoma
     Dosage: PALLIATIVE FOLFOX WITHOUT HERCEPTIN, 8 CYCLES
     Route: 065
     Dates: start: 202102
  6. LEUCOVORIN [Concomitant]
     Active Substance: LEUCOVORIN
     Indication: Metastasis

REACTIONS (1)
  - Blindness transient [Recovered/Resolved]
